FAERS Safety Report 23179559 (Version 2)
Quarter: 2023Q4

REPORT INFORMATION
  Report Type: Report from Study
  Country: US (occurrence: US)
  Receive Date: 20231114
  Receipt Date: 20231212
  Transmission Date: 20240109
  Serious: No
  Sender: FDA-Public Use
  Company Number: US-SA-SAC20231106001594

PATIENT
  Age: 6 Year
  Sex: Male

DRUGS (2)
  1. DUPILUMAB [Suspect]
     Active Substance: DUPILUMAB
     Indication: Dermatitis atopic
     Dosage: 600 MG, 1X
     Route: 058
  2. DUPILUMAB [Suspect]
     Active Substance: DUPILUMAB
     Dosage: 300 MG, Q4W
     Route: 058

REACTIONS (14)
  - Dry skin [Unknown]
  - Skin fissures [Unknown]
  - Condition aggravated [Unknown]
  - Skin swelling [Unknown]
  - Pharyngitis streptococcal [Unknown]
  - Dark circles under eyes [Unknown]
  - Madarosis [Unknown]
  - Swelling face [Unknown]
  - Lip disorder [Unknown]
  - Skin exfoliation [Unknown]
  - Condition aggravated [Unknown]
  - Eye swelling [Unknown]
  - Pruritus [Unknown]
  - Rash [Not Recovered/Not Resolved]

NARRATIVE: CASE EVENT DATE: 20231116
